FAERS Safety Report 19000197 (Version 1)
Quarter: 2021Q1

REPORT INFORMATION
  Report Type: Report from Study
  Country: US (occurrence: US)
  Receive Date: 20210312
  Receipt Date: 20210312
  Transmission Date: 20210420
  Serious: Yes (Hospitalization)
  Sender: FDA-Public Use
  Company Number: US-TOPROL-2021000034

PATIENT
  Age: 84 Year
  Sex: Male
  Weight: 68 kg

DRUGS (7)
  1. CREON [Concomitant]
     Active Substance: PANCRELIPASE AMYLASE\PANCRELIPASE LIPASE\PANCRELIPASE PROTEASE
     Indication: SMALL INTESTINE CARCINOMA
     Dates: start: 20190102
  2. METOPROLOL. [Suspect]
     Active Substance: METOPROLOL
     Indication: CARDIAC FAILURE
     Route: 048
     Dates: start: 20161206, end: 20200304
  3. LASIX [Suspect]
     Active Substance: FUROSEMIDE
     Indication: CARDIAC FAILURE
     Route: 048
     Dates: start: 20180830, end: 20200304
  4. TAFAMIDIS MEGLUMINE [Suspect]
     Active Substance: TAFAMIDIS MEGLUMINE
     Indication: CARDIAC AMYLOIDOSIS
     Route: 048
     Dates: start: 20190119
  5. ELIQUIS [Concomitant]
     Active Substance: APIXABAN
     Indication: ATRIAL FIBRILLATION
     Dates: start: 20160518
  6. SPIRONOLACTONE. [Concomitant]
     Active Substance: SPIRONOLACTONE
     Indication: CARDIAC FAILURE
     Dates: start: 20190903
  7. OMEPRAZOL [Concomitant]
     Active Substance: OMEPRAZOLE
     Indication: SMALL INTESTINE CARCINOMA
     Dates: start: 20131031

REACTIONS (5)
  - Humerus fracture [Recovering/Resolving]
  - Dizziness [Recovered/Resolved]
  - Tachycardia [Recovered/Resolved]
  - Orthostatic hypotension [Recovered/Resolved]
  - Syncope [Recovered/Resolved]

NARRATIVE: CASE EVENT DATE: 20200305
